FAERS Safety Report 10221130 (Version 2)
Quarter: 2014Q4

REPORT INFORMATION
  Report Type: Report from Study
  Country: JP (occurrence: JP)
  Receive Date: 20140606
  Receipt Date: 20141117
  Transmission Date: 20150528
  Serious: Yes (Hospitalization)
  Sender: FDA-Public Use
  Company Number: JP-SA-2014SA072704

PATIENT
  Age: 52 Year
  Sex: Male
  Weight: 66 kg

DRUGS (33)
  1. INOVAN [Concomitant]
     Active Substance: DOPAMINE HYDROCHLORIDE
     Dates: start: 20100501, end: 20100715
  2. LASIX [Concomitant]
     Active Substance: FUROSEMIDE
     Dates: start: 20100502, end: 20100625
  3. ATARAX-P [Concomitant]
     Active Substance: HYDROXYZINE HYDROCHLORIDE
     Dates: start: 20100512, end: 20100815
  4. BIOFERMIN R [Concomitant]
     Active Substance: BACILLUS SUBTILIS\LACTOBACILLUS ACIDOPHILUS\STREPTOCOCCUS FAECAIS
     Dates: start: 20100325
  5. THYMOGLOBULINE [Suspect]
     Active Substance: LAPINE T-LYMPHOCYTE IMMUNE GLOBULIN
     Indication: BONE MARROW CONDITIONING REGIMEN
     Route: 042
     Dates: start: 20100322, end: 20100322
  6. THYMOGLOBULINE [Suspect]
     Active Substance: LAPINE T-LYMPHOCYTE IMMUNE GLOBULIN
     Indication: BONE MARROW CONDITIONING REGIMEN
     Route: 042
     Dates: start: 20100323, end: 20100323
  7. PRIMPERAN [Concomitant]
     Active Substance: METOCLOPRAMIDE HYDROCHLORIDE
     Dates: start: 20100322, end: 20100722
  8. HYDROCORTONE [Concomitant]
     Active Substance: HYDROCORTISONE
     Dates: start: 20100323, end: 20100804
  9. ANTITHROMBIN III [Concomitant]
     Active Substance: ANTITHROMBIN III HUMAN
     Route: 042
     Dates: start: 20100503, end: 20100523
  10. MAGMITT [Concomitant]
     Active Substance: MAGNESIUM OXIDE
     Dates: start: 20100325
  11. NORVASC [Concomitant]
     Active Substance: AMLODIPINE BESYLATE
     Dates: start: 20100327, end: 20100714
  12. TETRAMIDE [Concomitant]
     Active Substance: MIANSERIN
     Dates: start: 20100513
  13. VANCOMYCIN [Concomitant]
     Active Substance: VANCOMYCIN
     Dates: start: 20100404, end: 20100813
  14. DENOSINE [Concomitant]
     Active Substance: GANCICLOVIR
     Route: 042
     Dates: start: 20100415, end: 20100515
  15. URSO [Concomitant]
     Active Substance: URSODIOL
     Dates: start: 20100325
  16. AMINOACETIC ACID/CYSTEINE/GLYCYRRHIZIC ACID [Concomitant]
     Dates: start: 20100322, end: 20100916
  17. SANDIMMUNE [Concomitant]
     Active Substance: CYCLOSPORINE
     Dates: start: 20100324, end: 20100502
  18. MAGNESIUM SULFATE. [Concomitant]
     Active Substance: MAGNESIUM SULFATE
     Dates: start: 20100327, end: 20100722
  19. THYMOGLOBULINE [Suspect]
     Active Substance: LAPINE T-LYMPHOCYTE IMMUNE GLOBULIN
     Indication: BONE MARROW CONDITIONING REGIMEN
     Route: 042
     Dates: start: 20100324, end: 20100324
  20. VENOGLOBULIN-IH [Concomitant]
     Dates: start: 20100325, end: 20100901
  21. FUNGUARD [Concomitant]
     Active Substance: MICAFUNGIN SODIUM
     Route: 042
     Dates: start: 20100401, end: 20100501
  22. PENTAGIN [Concomitant]
     Active Substance: PENTAZOCINE HYDROCHLORIDE
     Dates: start: 20100502, end: 20100610
  23. NEOLAMIN MULTI V [Concomitant]
     Dates: start: 20100323, end: 20100727
  24. MORPHINE HYDROCHLORIDE [Concomitant]
     Active Substance: MORPHINE HYDROCHLORIDE
     Dates: start: 20100401, end: 20100622
  25. PANTOL [Concomitant]
     Active Substance: DEXPANTHENOL
     Dates: start: 20100405, end: 20100722
  26. ALBUMIN [Concomitant]
     Active Substance: ALBUMIN (HUMAN)
     Route: 042
     Dates: start: 20100501, end: 20100602
  27. ROPION [Concomitant]
     Active Substance: FLURBIPROFEN AXETIL
     Dates: start: 20100404, end: 20100609
  28. ZOSYN [Concomitant]
     Active Substance: PIPERACILLIN SODIUM\TAZOBACTAM SODIUM
     Route: 042
     Dates: start: 20100405, end: 20100428
  29. ACIROVEC [Concomitant]
     Active Substance: ACYCLOVIR
     Route: 042
     Dates: start: 20100401, end: 20100501
  30. PAZUCROSS [Concomitant]
     Active Substance: PAZUFLOXACIN MESILATE
     Dates: start: 20100403, end: 20100717
  31. ASPARA POTASSIUM [Concomitant]
     Active Substance: POTASSIUM ASPARTATE
     Dates: start: 20100409, end: 20100501
  32. OMEPRAL [Concomitant]
     Active Substance: OMEPRAZOLE
     Dates: start: 20100322, end: 20100502
  33. DALTEPARIN SODIUM [Concomitant]
     Active Substance: DALTEPARIN SODIUM
     Route: 042
     Dates: start: 20100322, end: 20100605

REACTIONS (2)
  - Venoocclusive liver disease [Recovered/Resolved]
  - Viral haemorrhagic cystitis [Recovered/Resolved]

NARRATIVE: CASE EVENT DATE: 20100429
